APPROVED DRUG PRODUCT: PAMELOR
Active Ingredient: NORTRIPTYLINE HYDROCHLORIDE
Strength: EQ 25MG BASE
Dosage Form/Route: CAPSULE;ORAL
Application: N018013 | Product #002
Applicant: SPECGX LLC
Approved: Approved Prior to Jan 1, 1982 | RLD: Yes | RS: No | Type: DISCN